FAERS Safety Report 4361085-4 (Version None)
Quarter: 2004Q2

REPORT INFORMATION
  Report Type: 
  Country: None (occurrence: None)
  Receive Date: 20040520
  Receipt Date: 20040512
  Transmission Date: 20050107
  Serious: Yes (Other)
  Sender: FDA-Public Use
  Company Number: IT-ROCHE-367428

PATIENT
  Age: 63 Year
  Sex: Male

DRUGS (2)
  1. INTERFERON ALFA [Suspect]
     Route: 065
     Dates: start: 19981115
  2. RIBAVIRIN [Suspect]
     Route: 065
     Dates: start: 19981115

REACTIONS (2)
  - COELIAC DISEASE [None]
  - WEIGHT DECREASED [None]
